FAERS Safety Report 18284587 (Version 1)
Quarter: 2020Q3

REPORT INFORMATION
  Report Type: Spontaneous
  Country: US (occurrence: US)
  Receive Date: 20200918
  Receipt Date: 20200918
  Transmission Date: 20201103
  Serious: Yes (Other)
  Sender: FDA-Public Use
  Company Number: US-ELI_LILLY_AND_COMPANY-US202009003485

PATIENT
  Sex: Female

DRUGS (6)
  1. RISPERDAL [Suspect]
     Active Substance: RISPERIDONE
     Indication: PRODUCT USED FOR UNKNOWN INDICATION
     Dosage: UNK UNK, UNKNOWN
     Route: 065
  2. PROLIXIN [Suspect]
     Active Substance: FLUPHENAZINE HYDROCHLORIDE
     Indication: PRODUCT USED FOR UNKNOWN INDICATION
     Dosage: UNK UNK, UNKNOWN
     Route: 065
  3. WELLBUTRIN [Concomitant]
     Active Substance: BUPROPION HYDROCHLORIDE
     Indication: PRODUCT USED FOR UNKNOWN INDICATION
  4. ZYPREXA [Suspect]
     Active Substance: OLANZAPINE
     Indication: DISSOCIATIVE IDENTITY DISORDER
  5. ZYPREXA [Suspect]
     Active Substance: OLANZAPINE
     Indication: BIPOLAR DISORDER
     Dosage: UNK UNK, UNKNOWN
     Route: 065
  6. PROLEXA [OLANZAPINE] [Concomitant]
     Active Substance: OLANZAPINE
     Indication: PRODUCT USED FOR UNKNOWN INDICATION

REACTIONS (11)
  - Lung neoplasm malignant [Unknown]
  - Diabetes mellitus [Unknown]
  - Gastric cancer [Unknown]
  - Compulsions [Unknown]
  - Anxiety [Unknown]
  - Sedation [Unknown]
  - Dysarthria [Unknown]
  - Sleep disorder due to general medical condition, insomnia type [Unknown]
  - Wrong technique in product usage process [Unknown]
  - Renal impairment [Unknown]
  - Urinary retention [Unknown]

NARRATIVE: CASE EVENT DATE: 20200908
